FAERS Safety Report 13485247 (Version 1)
Quarter: 2017Q2

REPORT INFORMATION
  Report Type: Spontaneous
  Country: US (occurrence: US)
  Receive Date: 20170426
  Receipt Date: 20170426
  Transmission Date: 20170830
  Serious: No
  Sender: FDA-Public Use
  Company Number: PHEH2017US011275

PATIENT
  Sex: Male

DRUGS (1)
  1. ENTRESTO [Suspect]
     Active Substance: SACUBITRIL\VALSARTAN
     Indication: PRODUCT USED FOR UNKNOWN INDICATION
     Dosage: 100 OT (49/51), UNK
     Route: 065

REACTIONS (4)
  - Dizziness [Unknown]
  - Dysstasia [Unknown]
  - Presyncope [Unknown]
  - Drug ineffective [Unknown]
